FAERS Safety Report 21520861 (Version 1)
Quarter: 2022Q4

REPORT INFORMATION
  Report Type: Spontaneous
  Country: US (occurrence: None)
  Receive Date: 20221028
  Receipt Date: 20221028
  Transmission Date: 20230112
  Serious: Yes (Hospitalization, Other)
  Sender: FDA-Public Use
  Company Number: 2022A355839

PATIENT
  Sex: Male

DRUGS (2)
  1. CRESTOR [Suspect]
     Active Substance: ROSUVASTATIN CALCIUM
     Dosage: 10.0MG UNKNOWN
     Route: 048
  2. ROSUVASTATIN [Suspect]
     Active Substance: ROSUVASTATIN
     Dosage: GENERIC; DOSE UNKNOWN
     Route: 048

REACTIONS (4)
  - Blood electrolytes abnormal [Recovering/Resolving]
  - Renal disorder [Recovering/Resolving]
  - Blood potassium abnormal [Recovering/Resolving]
  - Dehydration [Unknown]
